FAERS Safety Report 5410451-4 (Version None)
Quarter: 2007Q3

REPORT INFORMATION
  Report Type: 
  Country: None (occurrence: None)
  Receive Date: 20070810
  Receipt Date: 20061214
  Transmission Date: 20080115
  Serious: No
  Sender: FDA-Public Use
  Company Number: A0631611A

PATIENT
  Age: 8 Year
  Sex: Female

DRUGS (1)
  1. PAROXETINE [Suspect]
     Indication: DEPRESSION
     Route: 048
     Dates: start: 19950101, end: 19960101

REACTIONS (1)
  - DRUG INEFFECTIVE [None]
